FAERS Safety Report 5628123-X (Version None)
Quarter: 2008Q1

REPORT INFORMATION
  Report Type: 
  Country: None (occurrence: None)
  Receive Date: 20080215
  Receipt Date: 20080211
  Transmission Date: 20080703
  Serious: Yes (Hospitalization)
  Sender: FDA-Public Use
  Company Number: DE-JNJFOC-20080202652

PATIENT
  Age: 82 Year
  Sex: Male

DRUGS (4)
  1. REMINYL [Suspect]
     Indication: DEMENTIA
     Route: 048
  2. RISPERDAL [Concomitant]
     Route: 048
  3. RISPERDAL [Concomitant]
     Route: 048
  4. RAMIPRIL [Concomitant]
     Route: 048

REACTIONS (1)
  - DERMATITIS ALLERGIC [None]
